FAERS Safety Report 18496754 (Version 2)
Quarter: 2021Q1

REPORT INFORMATION
  Report Type: Spontaneous
  Country: BE (occurrence: BE)
  Receive Date: 20201112
  Receipt Date: 20210317
  Transmission Date: 20210419
  Serious: No
  Sender: FDA-Public Use
  Company Number: BE-MYLANLABS-2020M1094267

PATIENT
  Sex: Male

DRUGS (1)
  1. EPIPEN JR [Suspect]
     Active Substance: EPINEPHRINE
     Indication: ALLERGY PROPHYLAXIS
     Dosage: 0.15 MG AS NEEDED INJECTION SOLUTION
     Route: 030

REACTIONS (2)
  - Product quality issue [Unknown]
  - Device failure [Unknown]
